FAERS Safety Report 13665367 (Version 1)
Quarter: 2017Q2

REPORT INFORMATION
  Report Type: Spontaneous
  Country: US (occurrence: US)
  Receive Date: 20170619
  Receipt Date: 20170619
  Transmission Date: 20170830
  Serious: Yes (Other)
  Sender: FDA-Public Use
  Company Number: US-SA-2017SA109389

PATIENT
  Sex: Female

DRUGS (4)
  1. TAXOTERE [Suspect]
     Active Substance: DOCETAXEL
     Indication: INVASIVE DUCTAL BREAST CARCINOMA
     Route: 051
  2. TAXOTERE [Suspect]
     Active Substance: DOCETAXEL
     Indication: INVASIVE DUCTAL BREAST CARCINOMA
     Route: 051
  3. HERCEPTIN [Concomitant]
     Active Substance: TRASTUZUMAB
     Route: 051
  4. CYTOXAN [Concomitant]
     Active Substance: CYCLOPHOSPHAMIDE
     Route: 065

REACTIONS (18)
  - Madarosis [Unknown]
  - Fatigue [Unknown]
  - Pain [Unknown]
  - Off label use [Unknown]
  - Loss of personal independence in daily activities [Unknown]
  - Lymphoedema [Unknown]
  - Alopecia [Not Recovered/Not Resolved]
  - Impaired work ability [Unknown]
  - Deposit eye [Unknown]
  - Onychomadesis [Unknown]
  - Artificial menopause [Not Recovered/Not Resolved]
  - Emotional distress [Unknown]
  - Lacrimation increased [Unknown]
  - Visual impairment [Unknown]
  - Eye infection [Unknown]
  - Paraesthesia [Unknown]
  - Depression [Unknown]
  - Drug ineffective [Unknown]
